FAERS Safety Report 14413928 (Version 1)
Quarter: 2018Q1

REPORT INFORMATION
  Report Type: Spontaneous
  Country: US (occurrence: US)
  Receive Date: 20180118
  Receipt Date: 20180118
  Transmission Date: 20180509
  Serious: Yes (Hospitalization)
  Sender: FDA-Public Use
  Company Number: None

PATIENT
  Age: 64 Year
  Sex: Female

DRUGS (4)
  1. PROCRIT [Concomitant]
     Active Substance: ERYTHROPOIETIN
  2. NOVOLOG [Concomitant]
     Active Substance: INSULIN ASPART
  3. MINOXIDIL. [Concomitant]
     Active Substance: MINOXIDIL
  4. SENSIPAR [Suspect]
     Active Substance: CINACALCET HYDROCHLORIDE
     Indication: HYPERPARATHYROIDISM
     Route: 048
     Dates: start: 201608

REACTIONS (2)
  - Dialysis [None]
  - Drug dose omission [None]

NARRATIVE: CASE EVENT DATE: 201711
